FAERS Safety Report 5202989-X (Version None)
Quarter: 2006Q4

REPORT INFORMATION
  Report Type: 
  Country: None (occurrence: None)
  Receive Date: 20061016
  Receipt Date: 20060816
  Transmission Date: 20070319
  Serious: No
  Sender: FDA-Public Use
  Company Number: 2006SP003031

PATIENT
  Age: 85 Year
  Sex: Female
  Weight: 40.8237 kg

DRUGS (3)
  1. LUNESTA [Suspect]
     Indication: INSOMNIA
     Dosage: MG; HS; ORAL
     Route: 048
     Dates: start: 20050801, end: 20050801
  2. LUNESTA [Suspect]
     Indication: INSOMNIA
     Dosage: MG; HS; ORAL
     Route: 048
     Dates: start: 20050801, end: 20050801
  3. LUNESTA [Suspect]
     Indication: INSOMNIA
     Dosage: MG; HS; ORAL
     Route: 048
     Dates: start: 20060712

REACTIONS (2)
  - DRUG INEFFECTIVE [None]
  - INSOMNIA [None]
